FAERS Safety Report 15151674 (Version 1)
Quarter: 2018Q3

REPORT INFORMATION
  Report Type: Spontaneous
  Country: FR (occurrence: FR)
  Receive Date: 20180716
  Receipt Date: 20180716
  Transmission Date: 20181010
  Serious: Yes (Other)
  Sender: FDA-Public Use
  Company Number: FR-LUNDBECK-DKLU2051589

PATIENT
  Age: 20 Year
  Sex: Male

DRUGS (2)
  1. URBANYL [Suspect]
     Active Substance: CLOBAZAM
     Indication: PRODUCT USED FOR UNKNOWN INDICATION
     Route: 065
  2. DEPAKINE [Suspect]
     Active Substance: VALPROATE SODIUM
     Indication: PRODUCT USED FOR UNKNOWN INDICATION
     Route: 065

REACTIONS (5)
  - Aggression [Unknown]
  - Injury [Unknown]
  - Epilepsy [Unknown]
  - Abnormal behaviour [Unknown]
  - Amnesia [Unknown]
